FAERS Safety Report 8053479-0 (Version None)
Quarter: 2012Q1

REPORT INFORMATION
  Report Type: 
  Country: None (occurrence: None)
  Receive Date: 20120118
  Receipt Date: 20120103
  Transmission Date: 20120608
  Serious: Yes (Death)
  Sender: FDA-Public Use
  Company Number: PE-PFIZER INC-2012002680

PATIENT
  Age: 65 Year
  Sex: Male

DRUGS (1)
  1. ECALTA [Suspect]

REACTIONS (1)
  - DEATH [None]
